FAERS Safety Report 5278204-8 (Version None)
Quarter: 2007Q1

REPORT INFORMATION
  Report Type: 
  Country: None (occurrence: None)
  Receive Date: 20070328
  Receipt Date: 20070315
  Transmission Date: 20070707
  Serious: Yes (Hospitalization)
  Sender: FDA-Public Use
  Company Number: US-JNJFOC-20070303986

PATIENT
  Sex: Female

DRUGS (13)
  1. INFLIXIMAB [Suspect]
     Indication: RHEUMATOID ARTHRITIS
     Route: 042
  2. CELEXA [Concomitant]
  3. FISH OIL [Concomitant]
  4. LOTENSIN [Concomitant]
  5. PREDNISONE [Concomitant]
  6. NEURONTIN [Concomitant]
  7. VERAPAMIL [Concomitant]
  8. CALCIUM+D [Concomitant]
  9. ASCORBIC ACID [Concomitant]
  10. VITAMIN E [Concomitant]
  11. MULTI-VITAMIN [Concomitant]
  12. TYLENOL [Concomitant]
  13. ULTRAM [Concomitant]

REACTIONS (4)
  - GASTROINTESTINAL NECROSIS [None]
  - INTERNAL HERNIA [None]
  - PLEURAL EFFUSION [None]
  - SMALL INTESTINAL OBSTRUCTION [None]
